FAERS Safety Report 7408879-6 (Version None)
Quarter: 2011Q2

REPORT INFORMATION
  Report Type: 
  Country: None (occurrence: None)
  Receive Date: 20110412
  Receipt Date: 20110408
  Transmission Date: 20111010
  Serious: Yes (Death, Other)
  Sender: FDA-Public Use
  Company Number: PHHY2009JP12423

PATIENT
  Sex: Male

DRUGS (14)
  1. ASPIRIN [Concomitant]
     Dosage: 100 MG
     Route: 048
     Dates: start: 20071121, end: 20080731
  2. OXYCONTIN [Concomitant]
     Dosage: 5 MG, UNK
     Route: 048
     Dates: start: 20081121
  3. DECADRON [Concomitant]
     Dosage: 2 MG
     Route: 048
     Dates: start: 20080801
  4. FERRUM [Concomitant]
     Dosage: 305 MG, UNK
     Route: 048
     Dates: start: 20080905
  5. PURSENNID [Concomitant]
     Dosage: 24 MG, UNK
     Route: 048
     Dates: start: 20081114
  6. CGP 42446 [Suspect]
     Indication: METASTASES TO BONE
     Dosage: 4 MG, QMO
     Route: 042
     Dates: start: 20071121, end: 20090715
  7. LEUPLIN [Concomitant]
     Dosage: 11.25MG
     Route: 042
     Dates: start: 20071121, end: 20081121
  8. DECADRON [Concomitant]
     Dosage: 1 MG
     Route: 048
  9. LASIX [Concomitant]
     Dosage: 20 MG, UNK
     Route: 048
     Dates: start: 20081128, end: 20081203
  10. MAGLAX [Concomitant]
     Dosage: 1500 MG, UNK
     Route: 048
     Dates: start: 20081114
  11. OXYCONTIN [Concomitant]
     Dosage: 10 MG, UNK
     Dates: end: 20090322
  12. ESTRACYT [Concomitant]
     Dosage: 3 DF, UNK
     Route: 048
     Dates: start: 20071121, end: 20080731
  13. DECADRON [Concomitant]
     Dosage: 1.5 MG
     Route: 048
  14. GASTER D [Concomitant]
     Dosage: 40 MG, UNK
     Route: 048
     Dates: start: 20081119, end: 20090329

REACTIONS (4)
  - HYPOCALCAEMIA [None]
  - DRUG INEFFECTIVE [None]
  - RENAL IMPAIRMENT [None]
  - NEOPLASM MALIGNANT [None]
